FAERS Safety Report 8885414 (Version 1)
Quarter: 2012Q4

REPORT INFORMATION
  Report Type: 
  Country: US (occurrence: US)
  Receive Date: 20121101
  Receipt Date: 20121101
  Transmission Date: 20130627
  Serious: Yes (Hospitalization, Disabling, Other)
  Sender: FDA-Public Use
  Company Number: US-ELI_LILLY_AND_COMPANY-US201210008531

PATIENT
  Age: 65 None
  Sex: Female

DRUGS (2)
  1. HUMULIN 30% REGULAR, 70% NPH [Suspect]
     Indication: TYPE 2 DIABETES MELLITUS
     Dosage: 35 u, bid
     Dates: start: 2005
  2. GLYBURIDE [Concomitant]

REACTIONS (22)
  - Femur fracture [Unknown]
  - Pneumonia [Unknown]
  - Pulmonary embolism [Unknown]
  - Atrial fibrillation [Unknown]
  - Haematoma [Unknown]
  - Body temperature increased [Unknown]
  - Nausea [Unknown]
  - Vomiting [Unknown]
  - Limb operation [Recovered/Resolved]
  - Bone graft [Recovered/Resolved]
  - Haemorrhage [Recovered/Resolved]
  - Fall [Recovered/Resolved]
  - Abscess limb [Unknown]
  - Infection [Recovered/Resolved]
  - Mobility decreased [Not Recovered/Not Resolved]
  - Impaired healing [Unknown]
  - Blood glucose increased [Unknown]
  - Vomiting [Unknown]
  - Depression [Unknown]
  - Drug dose omission [Recovered/Resolved]
  - Incorrect storage of drug [Unknown]
  - Glycosylated haemoglobin increased [Unknown]
